FAERS Safety Report 12429113 (Version 1)
Quarter: 2016Q2

REPORT INFORMATION
  Report Type: Spontaneous
  Country: NL (occurrence: NL)
  Receive Date: 20160602
  Receipt Date: 20160602
  Transmission Date: 20160815
  Serious: Yes (Hospitalization, Other)
  Sender: FDA-Public Use
  Company Number: NL-JNJFOC-20160526568

PATIENT

DRUGS (2)
  1. ADALIMUMAB [Suspect]
     Active Substance: ADALIMUMAB
     Indication: INFLAMMATORY BOWEL DISEASE
     Route: 065
  2. INFLIXIMAB, RECOMBINANT [Suspect]
     Active Substance: INFLIXIMAB
     Indication: INFLAMMATORY BOWEL DISEASE
     Route: 042

REACTIONS (9)
  - Unevaluable event [Unknown]
  - Eye disorder [Unknown]
  - Arthritis [Unknown]
  - Surgery [Unknown]
  - Fistula [Unknown]
  - Psoriasis [Unknown]
  - Aphthous ulcer [Unknown]
  - Erythema nodosum [Unknown]
  - Abscess [Unknown]
